FAERS Safety Report 4702807-X (Version None)
Quarter: 2005Q2

REPORT INFORMATION
  Report Type: 
  Country: None (occurrence: None)
  Receive Date: 20050629
  Receipt Date: 20050615
  Transmission Date: 20051028
  Serious: Yes (Hospitalization)
  Sender: FDA-Public Use
  Company Number: US-SANOFI-SYNTHELABO-A03200501812

PATIENT
  Sex: Female
  Weight: 98.4 kg

DRUGS (4)
  1. ELOXATIN [Suspect]
     Indication: COLORECTAL CANCER METASTATIC
     Route: 042
     Dates: start: 20050525, end: 20050525
  2. FLUOROURACIL [Concomitant]
     Dosage: UNK
     Route: 065
  3. LEUCOVORIN [Concomitant]
     Dosage: UNK
     Route: 065
  4. AVASTIN [Concomitant]
     Dosage: UNK
     Route: 042

REACTIONS (2)
  - RENAL FAILURE ACUTE [None]
  - VOMITING [None]
